FAERS Safety Report 15379055 (Version 1)
Quarter: 2018Q3

REPORT INFORMATION
  Report Type: Spontaneous
  Country: US (occurrence: US)
  Receive Date: 20180906
  Receipt Date: 20180906
  Transmission Date: 20181010
  Serious: Yes (Other)
  Sender: FDA-Public Use
  Company Number: None

PATIENT
  Age: 33 Year
  Sex: Female
  Weight: 58.97 kg

DRUGS (1)
  1. PARAGARD T 380A [Suspect]
     Active Substance: COPPER

REACTIONS (6)
  - Post procedural haemorrhage [None]
  - Device breakage [None]
  - Device use issue [None]
  - Procedural pain [None]
  - Muscle spasms [None]
  - Complication of device removal [None]

NARRATIVE: CASE EVENT DATE: 20180403
